FAERS Safety Report 7773392-3 (Version None)
Quarter: 2011Q3

REPORT INFORMATION
  Report Type: 
  Country: None (occurrence: None)
  Receive Date: 20110922
  Receipt Date: 20110915
  Transmission Date: 20111222
  Serious: Yes (Hospitalization)
  Sender: FDA-Public Use
  Company Number: US-US-EMD SERONO, INC.-7082283

PATIENT
  Sex: Female
  Weight: 98 kg

DRUGS (4)
  1. LISINOPRIL [Concomitant]
     Route: 048
  2. REBIF [Suspect]
     Indication: MULTIPLE SCLEROSIS
     Route: 058
     Dates: start: 20110531
  3. TETANUS, PERTUSSIS AND DIPTHERIA VACCINE [Concomitant]
     Dates: start: 20110909, end: 20110909
  4. HYDROCHLOROTHIAZIDE [Concomitant]

REACTIONS (2)
  - APPENDICECTOMY [None]
  - PARAESTHESIA [None]
